FAERS Safety Report 9911432 (Version 3)
Quarter: 2014Q1

REPORT INFORMATION
  Report Type: Report from Study
  Country: AU (occurrence: AU)
  Receive Date: 20140219
  Receipt Date: 20140307
  Transmission Date: 20141002
  Serious: Yes (Other)
  Sender: FDA-Public Use
  Company Number: PHHY2012AU129882

PATIENT
  Age: 77 Year
  Sex: Female

DRUGS (16)
  1. ACLASTA [Suspect]
     Dosage: 5 MG, UNK
     Route: 042
     Dates: start: 20100817
  2. ACLASTA [Suspect]
     Dosage: 5 MG, UNK
     Route: 042
     Dates: start: 20110829
  3. ACLASTA [Suspect]
     Dosage: 5 MG, UNK
     Route: 042
     Dates: start: 20120721
  4. ACLASTA [Suspect]
     Dosage: 5 MG/ 100 ML, UNK
     Route: 042
     Dates: start: 20130814
  5. ATENOLOL [Concomitant]
     Dosage: 50 MG, BID
     Route: 048
     Dates: start: 20131003
  6. ELOCON [Concomitant]
     Dosage: 0.1 %, QHS (APPLY AT NIGHT)
     Route: 061
     Dates: start: 20130130
  7. IMDUR [Concomitant]
     Dosage: 60 MG, QD
     Route: 048
     Dates: start: 20131003
  8. LASIX [Concomitant]
     Dosage: UNK (11/2 IN THE MORNING AS DIRECTED)
     Route: 048
     Dates: start: 20131204
  9. LYRICA [Concomitant]
     Dosage: 25 MG, QHS
     Route: 048
     Dates: start: 20131114
  10. MAREVAN [Concomitant]
     Indication: CARDIAC VALVE DISEASE
     Dosage: 1 MG, QHS
     Route: 048
     Dates: start: 20131231
  11. MONOPRIL [Concomitant]
     Dosage: 20 MG, QD
     Route: 048
     Dates: start: 20131003
  12. OROXINE [Concomitant]
     Dosage: 50 UG, QD
     Route: 048
     Dates: start: 20131003
  13. PANADOL OSTEO [Concomitant]
     Dosage: 665 MG, PRN (2 TO 3 TIMES A DAY, IF REQUIRED)
     Route: 048
     Dates: start: 20131024
  14. POLY-TEARS [Concomitant]
     Dosage: UNK UKN, PRN (2 TO 4 TIMES, IF REQUIRED)
     Route: 047
     Dates: start: 20100708
  15. SOFRADEX                                /NET/ [Concomitant]
     Dosage: UNK UKN, PRN (2 TO 4 TIMES AS REQUIRED)
     Route: 001
     Dates: start: 20120323
  16. STEMETIL//PROCHLORPERAZINE MALEATE [Concomitant]
     Dosage: 5 MG, Q8H (1 EIGHT HOURLY IF REQUIRED)
     Route: 048
     Dates: start: 20110920

REACTIONS (9)
  - Skin ulcer [Unknown]
  - Spinal osteoarthritis [Unknown]
  - Intervertebral disc protrusion [Unknown]
  - Sciatica [Unknown]
  - Spinal cord compression [Unknown]
  - Photosensitivity reaction [Unknown]
  - Pulmonary oedema [Unknown]
  - Mini mental status examination abnormal [Unknown]
  - Inappropriate schedule of drug administration [Unknown]
